FAERS Safety Report 12381403 (Version 2)
Quarter: 2016Q2

REPORT INFORMATION
  Report Type: Spontaneous
  Country: GB (occurrence: GB)
  Receive Date: 20160518
  Receipt Date: 20160520
  Transmission Date: 20160815
  Serious: Yes (Other)
  Sender: FDA-Public Use
  Company Number: GB-009507513-1605GBR007663

PATIENT
  Age: 34 Year
  Sex: Female
  Weight: 84 kg

DRUGS (2)
  1. ACETAMINOPHEN. [Concomitant]
     Active Substance: ACETAMINOPHEN
     Indication: HEADACHE
  2. NEXPLANON [Suspect]
     Active Substance: ETONOGESTREL
     Indication: CONTRACEPTION
     Dosage: 68 MG, UNK
     Dates: start: 20141203, end: 20160217

REACTIONS (13)
  - Headache [Unknown]
  - Breast pain [Unknown]
  - Depression [Recovering/Resolving]
  - Abnormal weight gain [Unknown]
  - Libido decreased [Recovered/Resolved]
  - Hot flush [Unknown]
  - Increased appetite [Recovered/Resolved with Sequelae]
  - Anxiety [Recovering/Resolving]
  - Breast cyst [Not Recovered/Not Resolved]
  - Acne [Unknown]
  - Fatigue [Recovered/Resolved with Sequelae]
  - Vaginal infection [Recovered/Resolved]
  - Dizziness [Recovered/Resolved]

NARRATIVE: CASE EVENT DATE: 2014
